FAERS Safety Report 11456159 (Version 1)
Quarter: 2015Q3

REPORT INFORMATION
  Report Type: Spontaneous
  Country: US (occurrence: US)
  Receive Date: 20150901
  Receipt Date: 20150901
  Transmission Date: 20151125
  Serious: Yes (Other)
  Sender: FDA-Public Use
  Company Number: US-B.I. PHARMACEUTICALS,INC./RIDGEFIELD-2015-BI-46224BP

PATIENT
  Sex: Female

DRUGS (4)
  1. GLYXAMBI [Suspect]
     Active Substance: EMPAGLIFLOZIN\LINAGLIPTIN
     Dosage: DOSE PER APPLICATION: 25/5 MG
     Route: 065
     Dates: start: 20150716, end: 20150820
  2. GLYXAMBI [Suspect]
     Active Substance: EMPAGLIFLOZIN\LINAGLIPTIN
     Indication: TYPE 2 DIABETES MELLITUS
     Dosage: DOSE PER APPLICATION: 10/5 MG
     Route: 065
     Dates: start: 20150410, end: 20150715
  3. LEVEMIR [Concomitant]
     Active Substance: INSULIN DETEMIR
     Indication: HYPERGLYCAEMIA
     Dosage: 12 U
     Route: 065
  4. METFORMIN [Concomitant]
     Active Substance: METFORMIN HYDROCHLORIDE
     Indication: TYPE 2 DIABETES MELLITUS
     Dosage: 1000 MG
     Route: 065

REACTIONS (1)
  - Acute prerenal failure [Unknown]
